FAERS Safety Report 18342916 (Version 3)
Quarter: 2021Q3

REPORT INFORMATION
  Report Type: Spontaneous
  Country: US (occurrence: US)
  Receive Date: 20201005
  Receipt Date: 20210723
  Transmission Date: 20211014
  Serious: Yes (Hospitalization, Other)
  Sender: FDA-Public Use
  Company Number: US-ASTRAZENECA-2020SF27340

PATIENT
  Age: 14742 Day
  Sex: Male
  Weight: 114.8 kg

DRUGS (31)
  1. METOPROLOL SUCCINATE. [Concomitant]
     Active Substance: METOPROLOL SUCCINATE
  2. AMLODIPINE BESYLATE. [Concomitant]
     Active Substance: AMLODIPINE BESYLATE
  3. METFORMIN HCL [Concomitant]
     Active Substance: METFORMIN HYDROCHLORIDE
  4. HUMULIN NOS [Concomitant]
     Active Substance: INSULIN HUMAN
  5. FARXIGA [Suspect]
     Active Substance: DAPAGLIFLOZIN PROPANEDIOL
     Indication: BLOOD PRESSURE DECREASED
     Route: 048
     Dates: start: 201702, end: 201809
  6. BENZONATATE. [Concomitant]
     Active Substance: BENZONATATE
  7. MOXIFLOXACIN. [Concomitant]
     Active Substance: MOXIFLOXACIN
  8. AZITHROMYCIN ANHYDROUS. [Concomitant]
     Active Substance: AZITHROMYCIN ANHYDROUS
  9. FARXIGA [Suspect]
     Active Substance: DAPAGLIFLOZIN PROPANEDIOL
     Indication: WEIGHT DECREASED
     Route: 048
     Dates: start: 201702, end: 201809
  10. CIPROFLOXACIN. [Concomitant]
     Active Substance: CIPROFLOXACIN
  11. LOSARTAN. [Concomitant]
     Active Substance: LOSARTAN
  12. NORVASC [Concomitant]
     Active Substance: AMLODIPINE BESYLATE
  13. JANUVIA [Concomitant]
     Active Substance: SITAGLIPTIN PHOSPHATE
  14. GABAPENTIN. [Concomitant]
     Active Substance: GABAPENTIN
  15. CLINDAMYCIN. [Concomitant]
     Active Substance: CLINDAMYCIN
  16. GEMFIBROZIL. [Concomitant]
     Active Substance: GEMFIBROZIL
  17. ACTOS [Concomitant]
     Active Substance: PIOGLITAZONE HYDROCHLORIDE
  18. SIMVASTATIN. [Concomitant]
     Active Substance: SIMVASTATIN
  19. MELOXICAM. [Concomitant]
     Active Substance: MELOXICAM
  20. CEPHALEXIN. [Concomitant]
     Active Substance: CEPHALEXIN
  21. FARXIGA [Suspect]
     Active Substance: DAPAGLIFLOZIN PROPANEDIOL
     Indication: TYPE 2 DIABETES MELLITUS
     Route: 048
     Dates: start: 201702, end: 201809
  22. LISINOPRIL. [Concomitant]
     Active Substance: LISINOPRIL
  23. GLIMEPIRIDE. [Concomitant]
     Active Substance: GLIMEPIRIDE
  24. AMOX?CLAV [Concomitant]
     Active Substance: AMOXICILLIN\CLAVULANATE POTASSIUM
  25. TOBRAMYCIN. [Concomitant]
     Active Substance: TOBRAMYCIN
  26. SILDENAFIL. [Concomitant]
     Active Substance: SILDENAFIL
  27. LOSARTAN POTASSIUM. [Concomitant]
     Active Substance: LOSARTAN POTASSIUM
  28. BESIVANCE [Concomitant]
     Active Substance: BESIFLOXACIN
  29. PIOGLITAZONE. [Concomitant]
     Active Substance: PIOGLITAZONE
  30. ASPIRIN. [Concomitant]
     Active Substance: ASPIRIN
  31. TRESIBA [Concomitant]
     Active Substance: INSULIN DEGLUDEC

REACTIONS (9)
  - Scrotal abscess [Unknown]
  - Fournier^s gangrene [Unknown]
  - Nerve injury [Unknown]
  - Anal incontinence [Unknown]
  - Pilonidal cyst [Unknown]
  - Cellulitis [Unknown]
  - Sepsis [Unknown]
  - Pain [Unknown]
  - Scar [Unknown]

NARRATIVE: CASE EVENT DATE: 20160331
